FAERS Safety Report 4436440-4 (Version None)
Quarter: 2004Q3

REPORT INFORMATION
  Report Type: 
  Country: None (occurrence: None)
  Receive Date: 20040830
  Receipt Date: 20040513
  Transmission Date: 20050211
  Serious: No
  Sender: FDA-Public Use
  Company Number: US-BRISTOL-MYERS SQUIBB COMPANY-12586525

PATIENT
  Age: 17 Year
  Sex: Male

DRUGS (1)
  1. ABILIFY [Suspect]
     Route: 048

REACTIONS (2)
  - AKATHISIA [None]
  - INSOMNIA [None]
